APPROVED DRUG PRODUCT: IBUPROFEN AND DIPHENHYDRAMINE CITRATE
Active Ingredient: DIPHENHYDRAMINE CITRATE; IBUPROFEN
Strength: 38MG;200MG
Dosage Form/Route: TABLET;ORAL
Application: A079113 | Product #001
Applicant: PERRIGO R AND D CO
Approved: Dec 22, 2008 | RLD: No | RS: No | Type: OTC